FAERS Safety Report 21180072 (Version 1)
Quarter: 2022Q3

REPORT INFORMATION
  Report Type: Spontaneous
  Country: US (occurrence: None)
  Receive Date: 20220805
  Receipt Date: 20220805
  Transmission Date: 20221026
  Serious: No
  Sender: FDA-Public Use
  Company Number: None

PATIENT
  Age: 92 Year
  Sex: Male
  Weight: 85 kg

DRUGS (1)
  1. SERTRALINE HYDROCHLORIDE [Suspect]
     Active Substance: SERTRALINE HYDROCHLORIDE
     Indication: Depression
     Dosage: 1 TAB EVERY DAY PO?
     Route: 048
     Dates: start: 20210526, end: 20210611

REACTIONS (5)
  - Hallucination, visual [None]
  - Hallucination, auditory [None]
  - Mood altered [None]
  - Blood sodium decreased [None]
  - Cystitis [None]

NARRATIVE: CASE EVENT DATE: 20220608
